FAERS Safety Report 8481370-4 (Version None)
Quarter: 2012Q2

REPORT INFORMATION
  Report Type: 
  Country: None (occurrence: None)
  Receive Date: 20120629
  Receipt Date: 20120629
  Transmission Date: 20120825
  Serious: Yes (Hospitalization)
  Sender: FDA-Public Use
  Company Number: None

PATIENT
  Age: 63 Year
  Sex: Female
  Weight: 129.9 kg

DRUGS (1)
  1. INFLIXIMAB [Suspect]
     Indication: CROHN'S DISEASE
     Dates: start: 20100619, end: 20120301

REACTIONS (7)
  - HYPERHIDROSIS [None]
  - URTICARIA [None]
  - RASH [None]
  - DYSPNOEA EXERTIONAL [None]
  - PRURITUS [None]
  - FEELING COLD [None]
  - ANGIOEDEMA [None]
